FAERS Safety Report 8194891 (Version 2)
Quarter: 2012Q4

REPORT INFORMATION
  Report Type: 
  Country: US (occurrence: US)
  Receive Date: 20111024
  Receipt Date: 20121213
  Transmission Date: 20130627
  Serious: Yes (Hospitalization, Other)
  Sender: FDA-Public Use
  Company Number: US-AMGEN-USASP2011053842

PATIENT
  Age: 75 Year
  Sex: Male
  Weight: 85.3 kg

DRUGS (5)
  1. NPLATE [Suspect]
     Indication: IDIOPATHIC THROMBOCYTOPENIC PURPURA
     Dates: start: 20090107
  2. PRAVACHOL [Concomitant]
  3. NITROSTAT [Concomitant]
  4. LASIX                              /00032601/ [Concomitant]
  5. PREDNISONE [Concomitant]

REACTIONS (2)
  - Pneumonia [Not Recovered/Not Resolved]
  - Cardiac disorder [Unknown]
